FAERS Safety Report 4576600-5 (Version None)
Quarter: 2005Q1

REPORT INFORMATION
  Report Type: 
  Country: None (occurrence: None)
  Receive Date: 20050127
  Receipt Date: 20041004
  Transmission Date: 20050727
  Serious: No
  Sender: FDA-Public Use
  Company Number: USA041080061

PATIENT
  Age: 64 Year
  Sex: Female
  Weight: 91 kg

DRUGS (10)
  1. STRATTERA [Suspect]
     Indication: FATIGUE
     Dosage: 25 MG DAY
     Dates: start: 20040929, end: 20041002
  2. PROZAC [Concomitant]
  3. NEURONTIN (GABAPENTIN PFIZER) [Concomitant]
  4. SYNTHROID [Concomitant]
  5. SINEQUAN [Concomitant]
  6. KLONOPIN [Concomitant]
  7. CLARINEX [Concomitant]
  8. FLONASE [Concomitant]
  9. PREVACID [Concomitant]
  10. ZIAC [Concomitant]

REACTIONS (6)
  - ASTHENIA [None]
  - FATIGUE [None]
  - FEELING JITTERY [None]
  - HEART RATE INCREASED [None]
  - NERVOUSNESS [None]
  - SOMNOLENCE [None]
